FAERS Safety Report 12531008 (Version 2)
Quarter: 2016Q3

REPORT INFORMATION
  Report Type: Spontaneous
  Country: DE (occurrence: DE)
  Receive Date: 20160706
  Receipt Date: 20160816
  Transmission Date: 20161109
  Serious: Yes (Other)
  Sender: FDA-Public Use
  Company Number: DE-THE MEDICINES COMPANY-DE-MDCO-16-00244

PATIENT
  Sex: Male
  Weight: 76 kg

DRUGS (2)
  1. ASPIRIN. [Concomitant]
     Active Substance: ASPIRIN
     Indication: PRODUCT USED FOR UNKNOWN INDICATION
     Dosage: NOT REPORTED
  2. ANGIOX [Suspect]
     Active Substance: BIVALIRUDIN
     Indication: CORONARY ANGIOPLASTY
     Dosage: 250MG/50 ML NACL

REACTIONS (2)
  - Heart rate increased [Recovered/Resolved]
  - Blood pressure increased [Recovered/Resolved]
